FAERS Safety Report 9217574 (Version 1)
Quarter: 2013Q2

REPORT INFORMATION
  Report Type: Spontaneous
  Country: GB (occurrence: GB)
  Receive Date: 20130408
  Receipt Date: 20130408
  Transmission Date: 20140414
  Serious: Yes (Other)
  Sender: FDA-Public Use
  Company Number: GB-PFIZER INC-2013106802

PATIENT
  Age: 47 Year
  Sex: Male
  Weight: 85 kg

DRUGS (3)
  1. RAMIPRIL [Suspect]
     Dosage: UNK
     Route: 065
     Dates: start: 20121205
  2. ATORVASTATIN [Concomitant]
     Dosage: UNK
     Route: 065
     Dates: start: 20121107
  3. BISOPROLOL [Concomitant]
     Dosage: UNK
     Route: 065
     Dates: start: 20121107

REACTIONS (1)
  - Raynaud^s phenomenon [Unknown]
